FAERS Safety Report 4997640-8 (Version None)
Quarter: 2006Q1

REPORT INFORMATION
  Report Type: 
  Country: None (occurrence: None)
  Receive Date: 20060315
  Receipt Date: 20060116
  Transmission Date: 20060701
  Serious: Yes (Other)
  Sender: FDA-Public Use
  Company Number: 432440

PATIENT
  Age: 62 Year
  Sex: Female

DRUGS (2)
  1. BONIVA [Suspect]
     Indication: OSTEOPENIA
     Dosage: 150 MG  1 PER MONTH  ORAL
     Route: 048
     Dates: start: 20050615
  2. FOSAMAX [Concomitant]

REACTIONS (1)
  - UPPER LIMB FRACTURE [None]
